FAERS Safety Report 18948555 (Version 1)
Quarter: 2021Q1

REPORT INFORMATION
  Report Type: Spontaneous
  Country: US (occurrence: US)
  Receive Date: 20210226
  Receipt Date: 20210226
  Transmission Date: 20210420
  Serious: No
  Sender: FDA-Public Use
  Company Number: US-ROCHE-2570861

PATIENT
  Age: 37 Year
  Sex: Female
  Weight: 59.02 kg

DRUGS (3)
  1. XOLAIR [Suspect]
     Active Substance: OMALIZUMAB
     Indication: CHRONIC SPONTANEOUS URTICARIA
     Dosage: ONCE EVERY 4?5 WEEKS
     Route: 058
     Dates: start: 201708, end: 201805
  2. XOLAIR [Suspect]
     Active Substance: OMALIZUMAB
     Dosage: REDUCED DOSE
     Route: 058
     Dates: start: 20180101
  3. XOLAIR [Suspect]
     Active Substance: OMALIZUMAB
     Dosage: ONCE EVERY 4?5 WEEKS
     Route: 058
     Dates: start: 20191201

REACTIONS (4)
  - Maternal exposure during pregnancy [Unknown]
  - Body temperature increased [Recovered/Resolved]
  - Stress [Unknown]
  - Cough [Not Recovered/Not Resolved]

NARRATIVE: CASE EVENT DATE: 202002
